FAERS Safety Report 11952449 (Version 1)
Quarter: 2016Q1

REPORT INFORMATION
  Report Type: Spontaneous
  Country: US (occurrence: US)
  Receive Date: 20160126
  Receipt Date: 20160126
  Transmission Date: 20160526
  Serious: No
  Sender: FDA-Public Use
  Company Number: US-DEXPHARM-20151738

PATIENT
  Age: 57 Year
  Sex: Male
  Weight: 72.56 kg

DRUGS (6)
  1. OMEPRAZOLE DELAYED RELEASE [Suspect]
     Active Substance: OMEPRAZOLE
     Indication: OESOPHAGEAL IRRITATION
     Route: 048
     Dates: start: 20150909, end: 20150915
  2. TOPROL XL [Concomitant]
     Active Substance: METOPROLOL SUCCINATE
  3. NORVASC [Concomitant]
     Active Substance: AMLODIPINE BESYLATE
  4. LISINOPRIL. [Concomitant]
     Active Substance: LISINOPRIL
  5. GLYBURIDE. [Concomitant]
     Active Substance: GLYBURIDE
     Dates: start: 201505
  6. POTASSIUM [Concomitant]
     Active Substance: POTASSIUM
     Dates: start: 201505

REACTIONS (1)
  - Pain in extremity [Recovered/Resolved]

NARRATIVE: CASE EVENT DATE: 20150909
